FAERS Safety Report 4437828-8 (Version None)
Quarter: 2004Q3

REPORT INFORMATION
  Report Type: 
  Country: None (occurrence: None)
  Receive Date: 20040831
  Receipt Date: 20040825
  Transmission Date: 20050211
  Serious: Yes (Death)
  Sender: FDA-Public Use
  Company Number: US-AMGEN-US088548

PATIENT
  Age: 87 Year
  Sex: Male

DRUGS (5)
  1. PROCRIT [Suspect]
     Indication: ANAEMIA
     Route: 058
     Dates: start: 20040401, end: 20040811
  2. HYDROXYUREA [Concomitant]
  3. DIGOXIN [Concomitant]
  4. ASPIRIN [Concomitant]
  5. BLOOD CELLS, PACKED HUMAN [Concomitant]
     Dates: end: 20040401

REACTIONS (5)
  - ANOREXIA [None]
  - ASTHENIA [None]
  - BASILAR ARTERY OCCLUSION [None]
  - CEREBRAL INFARCTION [None]
  - LETHARGY [None]
